FAERS Safety Report 9798289 (Version 1)
Quarter: 2014Q1

REPORT INFORMATION
  Report Type: Spontaneous
  Country: US (occurrence: None)
  Receive Date: 20140103
  Receipt Date: 20140103
  Transmission Date: 20141002
  Serious: Yes (Other)
  Sender: FDA-Public Use
  Company Number: None

PATIENT
  Age: 60 Year
  Sex: Female
  Weight: 92.99 kg

DRUGS (14)
  1. BYDUREON [Suspect]
     Indication: DIABETES MELLITUS
     Dosage: GIVEN INTO/UNDER THE SKIN
     Dates: start: 20131112, end: 20131211
  2. METFORMIN [Concomitant]
  3. SYNTHROID [Concomitant]
  4. LIPITOR [Concomitant]
  5. TRICOR [Concomitant]
  6. TOPRAL [Concomitant]
  7. VALSARTAN [Concomitant]
  8. LOVAZA [Concomitant]
  9. WELLBUTRIN [Concomitant]
  10. ASA [Concomitant]
  11. INVOKANA [Concomitant]
  12. ZANTAC [Concomitant]
  13. VIT D [Concomitant]
  14. BIOTIN [Concomitant]

REACTIONS (4)
  - Abdominal pain [None]
  - Injection site rash [None]
  - Injection site erythema [None]
  - Injection site pruritus [None]
